FAERS Safety Report 11811890 (Version 1)
Quarter: 2015Q4

REPORT INFORMATION
  Report Type: Spontaneous
  Country: AR (occurrence: AR)
  Receive Date: 20151208
  Receipt Date: 20151208
  Transmission Date: 20160305
  Serious: Yes (Life-Threatening, Hospitalization)
  Sender: FDA-Public Use
  Company Number: AR-PFIZER INC-2015411057

PATIENT
  Age: 70 Year
  Sex: Male

DRUGS (1)
  1. SUTENT [Suspect]
     Active Substance: SUNITINIB MALATE
     Indication: METASTATIC RENAL CELL CARCINOMA
     Dosage: UNK, CYCLIC (7 DAYS ON, 7 DAYS OFF)
     Dates: start: 20131101

REACTIONS (3)
  - Dehydration [Recovering/Resolving]
  - Disease progression [Unknown]
  - Metastatic renal cell carcinoma [Unknown]

NARRATIVE: CASE EVENT DATE: 20151113
